FAERS Safety Report 6120057-X (Version None)
Quarter: 2009Q1

REPORT INFORMATION
  Report Type: 
  Country: None (occurrence: None)
  Receive Date: 20090316
  Receipt Date: 20090306
  Transmission Date: 20090719
  Serious: Yes (Disabling)
  Sender: FDA-Public Use
  Company Number: TR-AMGEN-US338399

PATIENT
  Age: 47 Year
  Sex: Male

DRUGS (5)
  1. ENBREL [Suspect]
     Indication: PUSTULAR PSORIASIS
     Route: 058
  2. METHOTREXATE [Suspect]
     Indication: PUSTULAR PSORIASIS
     Route: 065
  3. CORTICOSTEROID NOS [Concomitant]
     Indication: PUSTULAR PSORIASIS
     Dosage: UNKNOWN
     Route: 065
  4. CYCLOSPORINE [Concomitant]
     Indication: PUSTULAR PSORIASIS
     Route: 065
  5. CALCIPOTRIENE [Concomitant]
     Dosage: UNKNOWN
     Route: 061

REACTIONS (1)
  - DRUG INEFFECTIVE [None]
